FAERS Safety Report 7575491-8 (Version None)
Quarter: 2011Q2

REPORT INFORMATION
  Report Type: 
  Country: None (occurrence: None)
  Receive Date: 20110627
  Receipt Date: 20110616
  Transmission Date: 20111010
  Serious: Yes (Hospitalization, Other)
  Sender: FDA-Public Use
  Company Number: US-ASTRAZENECA-2010SE28339

PATIENT
  Age: 67 Year
  Sex: Female

DRUGS (16)
  1. NEXIUM [Suspect]
     Route: 048
  2. ALPRAZOLAM [Concomitant]
  3. PERCOCET [Concomitant]
     Dosage: 10/325 AS NEEDED
  4. FUROSEMIDE [Concomitant]
     Route: 048
  5. TEKTURNA [Concomitant]
     Route: 048
  6. ATENOLOL [Suspect]
     Route: 048
  7. LASIX [Concomitant]
  8. LISINOPRIL [Suspect]
     Route: 048
  9. VERPAMIL HCL [Concomitant]
     Route: 048
  10. DILTIAZEM [Concomitant]
  11. SYNTHROID [Concomitant]
  12. SOTALOL HCL [Concomitant]
     Dosage: TWO IN THE MORNING AND TWO IN THE AFTERNOON
  13. FENTANYL [Concomitant]
     Route: 062
  14. ASPIRIN [Concomitant]
  15. POTASSIUM [Concomitant]
  16. CLONIDINE [Concomitant]
     Indication: HYPERTENSION

REACTIONS (36)
  - HYPERKALAEMIA [None]
  - ASTHENIA [None]
  - HEART RATE INCREASED [None]
  - CARDIAC PACEMAKER INSERTION [None]
  - PYREXIA [None]
  - VERTIGO [None]
  - BIOPSY BREAST [None]
  - SYSTEMIC LUPUS ERYTHEMATOSUS [None]
  - GASTROOESOPHAGEAL REFLUX DISEASE [None]
  - DRUG HYPERSENSITIVITY [None]
  - PALPITATIONS [None]
  - ATRIAL FIBRILLATION [None]
  - RALES [None]
  - NAUSEA [None]
  - RENAL ARTERY FIBROMUSCULAR DYSPLASIA [None]
  - SICK SINUS SYNDROME [None]
  - EAR INFECTION [None]
  - ABDOMINAL OPERATION [None]
  - GAIT DISTURBANCE [None]
  - BLUNTED AFFECT [None]
  - CHEST PAIN [None]
  - CARDIAC MURMUR [None]
  - NEUROPATHY PERIPHERAL [None]
  - HYPOTHYROIDISM [None]
  - PNEUMONIA [None]
  - PRESYNCOPE [None]
  - HYSTERECTOMY [None]
  - ATRIAL FLUTTER [None]
  - URINARY TRACT INFECTION [None]
  - BACK PAIN [None]
  - BRADYCARDIA [None]
  - HYPOTENSION [None]
  - HYPERHIDROSIS [None]
  - CONNECTIVE TISSUE DISORDER [None]
  - INCORRECT DOSE ADMINISTERED [None]
  - DYSPNOEA [None]
